FAERS Safety Report 8796087 (Version 2)
Quarter: 2012Q4

REPORT INFORMATION
  Report Type: Report from Study
  Country: IE (occurrence: MX)
  Receive Date: 20120920
  Receipt Date: 20120926
  Transmission Date: 20130627
  Serious: Yes (Hospitalization)
  Sender: FDA-Public Use
  Company Number: MX-BRISTOL-MYERS SQUIBB COMPANY-16946915

PATIENT
  Age: 27 Year
  Sex: Female

DRUGS (4)
  1. ATAZANAVIR [Suspect]
     Indication: HIV INFECTION
     Dosage: Intd on 06Sep12
     Route: 048
     Dates: start: 20120718
  2. RITONAVIR [Suspect]
     Indication: HIV INFECTION
     Dosage: Intd on 06Sep12
     Route: 048
     Dates: start: 20120718
  3. TENOFOVIR [Suspect]
     Indication: HIV INFECTION
     Dosage: Intd on 06Sep12
     Route: 048
     Dates: start: 20120718
  4. RALTEGRAVIR [Suspect]
     Indication: HIV INFECTION
     Dosage: Intd on 06Sep12
     Route: 048
     Dates: start: 20120718

REACTIONS (2)
  - Influenza [Recovering/Resolving]
  - Diarrhoea [Recovered/Resolved]
